FAERS Safety Report 7817908-7 (Version None)
Quarter: 2011Q4

REPORT INFORMATION
  Report Type: 
  Country: None (occurrence: None)
  Receive Date: 20111017
  Receipt Date: 20111004
  Transmission Date: 20120403
  Serious: Yes (Other)
  Sender: FDA-Public Use
  Company Number: PHHY2011BR88506

PATIENT
  Age: 43 Year
  Sex: Male

DRUGS (13)
  1. DIOVAN [Suspect]
     Indication: HYPERTENSION
     Dosage: 320 MG, DAILY
  2. ATENOLOL [Suspect]
     Indication: HYPERTENSION
     Dosage: 100 MG, DAILY
  3. EXFORGE HCT [Suspect]
     Indication: HYPERTENSION
     Dosage: 1 DF (160/5/25 MG), DAILY
  4. METHYLDOPA [Suspect]
     Indication: HYPERTENSION
     Dosage: 1500 MG, DAILY
  5. EXFORGE [Suspect]
     Indication: HYPERTENSION
     Dosage: 1 DF (320/10 MG), DAILY
     Dates: start: 20100701
  6. CLONIDINE [Suspect]
     Indication: HYPERTENSION
     Dosage: UNK
  7. HYGROTON [Suspect]
     Indication: HYPERTENSION
     Dosage: 25 MG, DAILY
  8. RASILEZ [Suspect]
     Indication: HYPERTENSION
     Dosage: 1 DF (300 MG), DAILY
     Dates: start: 20100701
  9. SPIRONOLACTONE [Suspect]
     Indication: HYPERTENSION
     Dosage: 25 MG, DAILY
  10. AMLODIPINE [Suspect]
     Indication: HYPERTENSION
     Dosage: 15 MG, UNK
  11. MINOXIDIL [Suspect]
     Indication: HYPERTENSION
     Dosage: 10 MG, DAILY
  12. IMIPRAMINE [Suspect]
     Dosage: UNK
  13. LORAZEPAM [Suspect]
     Dosage: UNK

REACTIONS (2)
  - RENAL ARTERIOSCLEROSIS [None]
  - GLOMERULOSCLEROSIS [None]
